FAERS Safety Report 6445259-4 (Version None)
Quarter: 2009Q4

REPORT INFORMATION
  Report Type: 
  Country: None (occurrence: None)
  Receive Date: 20091112
  Receipt Date: 20091031
  Transmission Date: 20100525
  Serious: Yes (Hospitalization, Other)
  Sender: FDA-Public Use
  Company Number: 2008-04443

PATIENT
  Age: 51 Year
  Sex: Female
  Weight: 51 kg

DRUGS (27)
  1. VELCADE [Suspect]
     Indication: MANTLE CELL LYMPHOMA
     Dosage: 1.3 MG/M2 UNK IV BOLUS
     Route: 040
     Dates: start: 20080414, end: 20080719
  2. RITUXIMAB (RITUXIMAB) INJECTION 375 MG/M2 [Suspect]
     Indication: MANTLE CELL LYMPHOMA
     Dosage: 375 MG/M2 UNK INTRAVENOUS
     Route: 040
     Dates: start: 20080414, end: 20080716
  3. CYCLOPHOSPHAMIDE [Suspect]
     Indication: MANTLE CELL LYMPHOMA
     Dosage: 300 MG/M2 UNK INTRAVENOUS
     Route: 042
     Dates: start: 20080414, end: 20080719
  4. DOXORUBICIN HCL [Suspect]
     Indication: MANTLE CELL LYMPHOMA
     Dosage: 25 MG/M2 UNK INTRAVENOUS
     Route: 042
     Dates: start: 20080414, end: 20080718
  5. VINCRISTINE [Suspect]
     Indication: MANTLE CELL LYMPHOMA
     Dosage: 1 MG UNK IV BOLUS
     Route: 040
     Dates: start: 20080414, end: 20080718
  6. DEXAMETHASONE TAB [Suspect]
     Indication: MANTLE CELL LYMPHOMA
     Dosage: 40 MG
     Dates: start: 20080414, end: 20080719
  7. NEULASTA [Suspect]
     Indication: MANTLE CELL LYMPHOMA
     Dosage: 6 MG UNK SUBCUTANEOUS
     Route: 058
     Dates: start: 20080414, end: 20080721
  8. ACYCLOVIR [Concomitant]
  9. ALEVE [Concomitant]
  10. AMBIEN [Concomitant]
  11. CARDURA [Concomitant]
  12. CIPRO [Concomitant]
  13. CYMBALTA [Concomitant]
  14. DIFLUCAN [Concomitant]
  15. DILAUDID (HYDROMORPHONEH HYDROCHLORIDE) [Concomitant]
  16. FLEXERIL [Concomitant]
  17. IMODIUM [Concomitant]
  18. MAGIC MOUTHWASH [Concomitant]
  19. METHADONE (METHADONE) [Concomitant]
  20. MEVACOR [Concomitant]
  21. MULTIVITAMIN [Concomitant]
  22. NYSTATIN [Concomitant]
  23. OXYBUTYNIN CHLORIDE [Concomitant]
  24. PROVIGIL [Concomitant]
  25. SENOKOT [Concomitant]
  26. LIDOCAINE VISCOUS (LIDOCAINE HYDROCHLORIDE) [Concomitant]
  27. VICODIN [Concomitant]

REACTIONS (9)
  - FEBRILE NEUTROPENIA [None]
  - HAEMOGLOBIN DECREASED [None]
  - MUSCULAR WEAKNESS [None]
  - MYALGIA [None]
  - OROPHARYNGEAL PAIN [None]
  - PLATELET COUNT DECREASED [None]
  - PNEUMONIA [None]
  - STOMATITIS [None]
  - TROPONIN T INCREASED [None]
